FAERS Safety Report 24417644 (Version 1)
Quarter: 2024Q4

REPORT INFORMATION
  Report Type: Spontaneous
  Country: US (occurrence: None)
  Receive Date: 20241009
  Receipt Date: 20241009
  Transmission Date: 20250115
  Serious: No
  Sender: Public
  Company Number: None

PATIENT
  Age: 42 Year
  Sex: Female

DRUGS (1)
  1. ORENCIA [Suspect]
     Active Substance: ABATACEPT
     Indication: Rheumatoid arthritis
     Dosage: FREQUENCY : WEEKLY;?
     Route: 030
     Dates: start: 20240831

REACTIONS (6)
  - Fatigue [None]
  - Nausea [None]
  - Urticaria [None]
  - Pruritus [None]
  - Dyspnoea [None]
  - Dyspnoea [None]

NARRATIVE: CASE EVENT DATE: 20240926
